FAERS Safety Report 9665033 (Version 3)
Quarter: 2013Q4

REPORT INFORMATION
  Report Type: Spontaneous
  Country: GB (occurrence: GB)
  Receive Date: 20131101
  Receipt Date: 20131107
  Transmission Date: 20140711
  Serious: Yes (Life-Threatening, Hospitalization, Other)
  Sender: FDA-Public Use
  Company Number: GB-VERTEX PHARMACEUTICALS INC-2013-010184

PATIENT
  Age: 52 Year
  Sex: Female
  Weight: 60 kg

DRUGS (8)
  1. INCIVO [Suspect]
     Indication: HEPATITIS C
     Dosage: TOTAL DAILY DOSE
     Route: 048
     Dates: start: 20130816, end: 20131016
  2. COPEGUS [Suspect]
     Indication: HEPATITIS C
     Dosage: DOSAGE FORM: UNSPECIFIED
     Route: 048
     Dates: start: 20130816, end: 20131023
  3. PEGASYS [Suspect]
     Indication: HEPATITIS C
     Dosage: DOSAGE FORM: UNSPECIFIED
     Route: 058
     Dates: start: 20130816, end: 20131023
  4. PROMETHAZINE [Concomitant]
     Indication: INSOMNIA
     Dosage: DOSAGE FORM: UNSPECIFIED
     Route: 058
     Dates: start: 20130919
  5. FOLIC ACID [Concomitant]
     Indication: ANAEMIA
     Dosage: DOSAGE FORM: UNSPECIFIED
     Route: 048
     Dates: start: 20130924
  6. DARBEPOETIN ALFA [Concomitant]
     Indication: ANAEMIA
     Dosage: DOSAGE FORM: UNSPECIFIED
     Route: 058
     Dates: start: 20130924
  7. FEXOFENADINE [Concomitant]
     Route: 058
  8. ZOPICLONE [Concomitant]
     Indication: PRODUCT USED FOR UNKNOWN INDICATION
     Dosage: DOSAGE FORM: UNSPECIFIED
     Route: 058

REACTIONS (4)
  - Rash [Not Recovered/Not Resolved]
  - Eczema [Not Recovered/Not Resolved]
  - Anaemia [Recovered/Resolved]
  - Face oedema [Unknown]
